FAERS Safety Report 19455992 (Version 3)
Quarter: 2021Q3

REPORT INFORMATION
  Report Type: Report from Study
  Country: None (occurrence: AR)
  Receive Date: 20210624
  Receipt Date: 20210709
  Transmission Date: 20211014
  Serious: Yes (Hospitalization)
  Sender: FDA-Public Use
  Company Number: AR-ABBVIE-21K-007-3963554-00

PATIENT
  Age: 47 Year
  Sex: Female

DRUGS (1)
  1. HUMIRA [Suspect]
     Active Substance: ADALIMUMAB
     Indication: PSORIATIC ARTHROPATHY
     Route: 058
     Dates: start: 20210622, end: 2021

REACTIONS (16)
  - Headache [Unknown]
  - Mucosal disorder [Recovering/Resolving]
  - Tongue dry [Recovering/Resolving]
  - Dry eye [Recovering/Resolving]
  - Allergic respiratory disease [Unknown]
  - Inflammation [Unknown]
  - Secretion discharge [Unknown]
  - Glossodynia [Recovering/Resolving]
  - Cough [Unknown]
  - Dyspnoea [Unknown]
  - Dizziness [Unknown]
  - Secretion discharge [Recovering/Resolving]
  - Dry throat [Recovering/Resolving]
  - Ocular discomfort [Unknown]
  - Chest discomfort [Unknown]
  - Arthritis [Recovering/Resolving]

NARRATIVE: CASE EVENT DATE: 2021
